FAERS Safety Report 12421761 (Version 1)
Quarter: 2016Q2

REPORT INFORMATION
  Report Type: Spontaneous
  Country: FR (occurrence: FR)
  Receive Date: 20160531
  Receipt Date: 20160531
  Transmission Date: 20160815
  Serious: Yes (Hospitalization)
  Sender: FDA-Public Use
  Company Number: FR-SA-2016SA099242

PATIENT
  Age: 67 Year
  Sex: Male

DRUGS (10)
  1. IMOVANE [Concomitant]
     Active Substance: ZOPICLONE
  2. PLAVIX [Suspect]
     Active Substance: CLOPIDOGREL BISULFATE
     Indication: THROMBOANGIITIS OBLITERANS
     Route: 048
  3. DEPAKINE CHRONO [Concomitant]
     Active Substance: VALPROATE SODIUM
  4. SPIRIVA [Concomitant]
     Active Substance: TIOTROPIUM BROMIDE MONOHYDRATE
  5. VITAMIN D/CALCIUM [Concomitant]
  6. PANTOPRAZOLE [Concomitant]
     Active Substance: PANTOPRAZOLE SODIUM
  7. PRAVASTATIN [Concomitant]
     Active Substance: PRAVASTATIN\PRAVASTATIN SODIUM
  8. FORADIL [Concomitant]
     Active Substance: FORMOTEROL FUMARATE
     Dosage: MAX 4/DAY
  9. DOLIPRANE [Concomitant]
     Active Substance: ACETAMINOPHEN
  10. AOTAL [Concomitant]
     Active Substance: ACAMPROSATE CALCIUM

REACTIONS (3)
  - Melaena [Recovered/Resolved]
  - Haematemesis [Recovered/Resolved]
  - Anaemia [Recovered/Resolved]

NARRATIVE: CASE EVENT DATE: 20151208
